FAERS Safety Report 23674990 (Version 2)
Quarter: 2024Q2

REPORT INFORMATION
  Report Type: Spontaneous
  Country: JP (occurrence: JP)
  Receive Date: 20240326
  Receipt Date: 20240409
  Transmission Date: 20240716
  Serious: Yes (Hospitalization)
  Sender: FDA-Public Use
  Company Number: JP-ELI_LILLY_AND_COMPANY-JP202403013377

PATIENT
  Age: 65 Year
  Sex: Male

DRUGS (1)
  1. RETEVMO [Suspect]
     Active Substance: SELPERCATINIB
     Indication: Non-small cell lung cancer
     Dosage: 240 MG, UNKNOWN
     Route: 048
     Dates: start: 20240111

REACTIONS (2)
  - Liver disorder [Not Recovered/Not Resolved]
  - Pleural effusion [Not Recovered/Not Resolved]
